FAERS Safety Report 7381202-1 (Version None)
Quarter: 2011Q1

REPORT INFORMATION
  Report Type: 
  Country: None (occurrence: None)
  Receive Date: 20110323
  Receipt Date: 20110323
  Transmission Date: 20110831
  Serious: Yes (Hospitalization)
  Sender: FDA-Public Use
  Company Number: None

PATIENT
  Age: 64 Year
  Sex: Male
  Weight: 90.4 kg

DRUGS (10)
  1. METFORMIN [Concomitant]
  2. ROSUVASTATION [Concomitant]
  3. DECITABINE [Suspect]
     Indication: MYELODYSPLASTIC SYNDROME
     Dosage: 0.2MG/KG SQ
  4. TESSALON [Concomitant]
  5. GLYBURIDE [Concomitant]
  6. LOTREL [Concomitant]
  7. OMEPRAZOLE [Concomitant]
  8. GLIMEPIRIDE [Concomitant]
  9. LEVAQUIN [Concomitant]
  10. BENAZEPRIL HYDROCHLORIDE [Concomitant]

REACTIONS (1)
  - DEEP VEIN THROMBOSIS [None]
